FAERS Safety Report 19908132 (Version 3)
Quarter: 2022Q1

REPORT INFORMATION
  Report Type: Other
  Country: US (occurrence: None)
  Receive Date: 20211002
  Receipt Date: 20220113
  Transmission Date: 20220423
  Serious: Yes (Hospitalization)
  Sender: FDA-Public Use
  Company Number: US-ROCHE-2920791

PATIENT
  Sex: Male
  Weight: 74.910 kg

DRUGS (1)
  1. OCREVUS [Suspect]
     Active Substance: OCRELIZUMAB
     Indication: Primary progressive multiple sclerosis
     Dosage: 300 MG REPEAT AFTER 2 WEEKS?01/FEB/2021, 27/JUL/2020, 16/DEC/2019.
     Route: 042
     Dates: start: 201708

REACTIONS (2)
  - Pneumonia [Recovered/Resolved]
  - Productive cough [Not Recovered/Not Resolved]
